FAERS Safety Report 25208813 (Version 4)
Quarter: 2025Q3

REPORT INFORMATION
  Report Type: Report from Study
  Country: US (occurrence: US)
  Receive Date: 20250417
  Receipt Date: 20250820
  Transmission Date: 20251021
  Serious: Yes (Other)
  Sender: ABBVIE
  Company Number: US-ABBVIE-6228499

PATIENT
  Age: 64 Year
  Sex: Female
  Weight: 67.131 kg

DRUGS (5)
  1. RINVOQ [Suspect]
     Active Substance: UPADACITINIB
     Indication: Psoriatic arthropathy
     Dosage: FORM STRENGTH: 15 MG
     Route: 048
     Dates: start: 20240212
  2. RINVOQ [Suspect]
     Active Substance: UPADACITINIB
     Indication: Psoriatic arthropathy
     Route: 048
  3. METOPROLOL [Concomitant]
     Active Substance: METOPROLOL
     Indication: Heart rate abnormal
  4. VITAMIN B12 [Concomitant]
     Active Substance: CYANOCOBALAMIN
     Indication: Headache
  5. VITAMIN D [Concomitant]
     Active Substance: VITAMIN D NOS
     Indication: Headache

REACTIONS (7)
  - Loss of consciousness [Recovering/Resolving]
  - Ligament rupture [Not Recovered/Not Resolved]
  - Road traffic accident [Unknown]
  - COVID-19 [Recovering/Resolving]
  - Contusion [Recovering/Resolving]
  - Concussion [Recovering/Resolving]
  - Fall [Recovering/Resolving]

NARRATIVE: CASE EVENT DATE: 20240901
